FAERS Safety Report 24590513 (Version 1)
Quarter: 2024Q4

REPORT INFORMATION
  Report Type: Spontaneous
  Country: US (occurrence: US)
  Receive Date: 20241107
  Receipt Date: 20241107
  Transmission Date: 20250115
  Serious: No
  Sender: ASTELLAS
  Company Number: US-ASTELLAS-2024-AER-015847

PATIENT
  Sex: Female

DRUGS (2)
  1. FEZOLINETANT [Suspect]
     Active Substance: FEZOLINETANT
     Indication: Product used for unknown indication
     Route: 065
  2. FEZOLINETANT [Suspect]
     Active Substance: FEZOLINETANT
     Route: 065

REACTIONS (1)
  - Oral mucosal blistering [Unknown]
